FAERS Safety Report 19451664 (Version 1)
Quarter: 2021Q2

REPORT INFORMATION
  Report Type: Spontaneous
  Country: US (occurrence: US)
  Receive Date: 20210623
  Receipt Date: 20210623
  Transmission Date: 20210717
  Serious: No
  Sender: FDA-Public Use
  Company Number: US-ACCORD-222961

PATIENT
  Age: 59 Year
  Sex: Female

DRUGS (1)
  1. CLONAZEPAM. [Suspect]
     Active Substance: CLONAZEPAM
     Indication: ANXIETY
     Dosage: AS NEEDED
     Route: 048
     Dates: start: 20210331

REACTIONS (4)
  - Feeling abnormal [Recovering/Resolving]
  - Product substitution issue [Unknown]
  - Anger [Recovering/Resolving]
  - Drug ineffective [Unknown]
